FAERS Safety Report 25101015 (Version 1)
Quarter: 2025Q1

REPORT INFORMATION
  Report Type: Spontaneous
  Country: HU (occurrence: HU)
  Receive Date: 20250320
  Receipt Date: 20250320
  Transmission Date: 20250409
  Serious: Yes (Life-Threatening)
  Sender: ROCHE
  Company Number: HU-ROCHE-10000230861

PATIENT
  Age: 34 Year

DRUGS (1)
  1. TAMIFLU [Suspect]
     Active Substance: OSELTAMIVIR PHOSPHATE
     Indication: Product used for unknown indication
     Route: 065

REACTIONS (3)
  - Neuropsychological symptoms [Unknown]
  - Gastrointestinal disorder [Unknown]
  - Cardiac arrest [Unknown]
